FAERS Safety Report 11095097 (Version 1)
Quarter: 2015Q2

REPORT INFORMATION
  Report Type: Spontaneous
  Country: US (occurrence: US)
  Receive Date: 20150506
  Receipt Date: 20150506
  Transmission Date: 20150821
  Serious: No
  Sender: FDA-Public Use
  Company Number: US-SA-2014SA071713

PATIENT
  Age: 71 Year
  Sex: Female

DRUGS (2)
  1. APIDRA SOLOSTAR [Suspect]
     Active Substance: INSULIN GLULISINE
     Indication: TYPE 2 DIABETES MELLITUS
     Dosage: BLOOD GLUCOSE 200-TAKES 23 U?IF FEELING GOOD TAKES NO MORE THAN 2 U BEFORE MEAL
     Route: 065
     Dates: start: 2002
  2. SOLOSTAR [Concomitant]
     Active Substance: DEVICE
     Dates: start: 2002

REACTIONS (2)
  - Malaise [Unknown]
  - Blood glucose increased [Unknown]
